FAERS Safety Report 4535919-4 (Version None)
Quarter: 2004Q4

REPORT INFORMATION
  Report Type: 
  Country: None (occurrence: None)
  Receive Date: 20041223
  Receipt Date: 20041215
  Transmission Date: 20050328
  Serious: Yes (Hospitalization)
  Sender: FDA-Public Use
  Company Number: PHRM2004FR03718

PATIENT
  Age: 58 Year
  Sex: Male

DRUGS (4)
  1. EXELON [Suspect]
     Dosage: 1 DF, QD
     Route: 048
     Dates: start: 20040301
  2. LEPTICUR [Suspect]
     Dosage: 10 MG, QD
     Route: 048
     Dates: start: 20041008
  3. BROMOKIN [Suspect]
     Dosage: 2 DF, QD
     Dates: start: 20041008
  4. SOLIAN [Suspect]
     Dosage: 400 MG, TID
     Route: 048
     Dates: start: 20041004

REACTIONS (5)
  - ABDOMINAL PAIN UPPER [None]
  - BRADYCARDIA [None]
  - CHEST PAIN [None]
  - ORTHOSTATIC HYPOTENSION [None]
  - SOMNOLENCE [None]
